FAERS Safety Report 12339030 (Version 1)
Quarter: 2016Q2

REPORT INFORMATION
  Report Type: Spontaneous
  Country: US (occurrence: US)
  Receive Date: 20160505
  Receipt Date: 20160505
  Transmission Date: 20160815
  Serious: Yes (Other)
  Sender: FDA-Public Use
  Company Number: US-PFIZER INC-2016243626

PATIENT
  Age: 59 Year
  Sex: Male

DRUGS (3)
  1. CORTISONE ACETATE. [Suspect]
     Active Substance: CORTISONE ACETATE
     Dosage: UNK
     Dates: start: 195009
  2. CORTISONE ACETATE. [Suspect]
     Active Substance: CORTISONE ACETATE
     Indication: POLYARTERITIS NODOSA
     Dosage: 100 MG, DAILY
     Route: 030
     Dates: start: 19500708
  3. CORTISONE ACETATE. [Suspect]
     Active Substance: CORTISONE ACETATE
     Dosage: UNK
     Dates: start: 195008

REACTIONS (1)
  - Disseminated tuberculosis [Not Recovered/Not Resolved]
